FAERS Safety Report 7552541-6 (Version None)
Quarter: 2011Q2

REPORT INFORMATION
  Report Type: 
  Country: None (occurrence: None)
  Receive Date: 20110616
  Receipt Date: 20110609
  Transmission Date: 20111010
  Serious: Yes (Hospitalization, Other)
  Sender: FDA-Public Use
  Company Number: AT-GILEAD-2011-0038482

PATIENT
  Sex: Male
  Weight: 62 kg

DRUGS (5)
  1. ATAZANAVIR [Suspect]
     Indication: HIV INFECTION
     Route: 048
     Dates: start: 20101019, end: 20110412
  2. MORPHINE SULFATE [Concomitant]
  3. ATAZANAVIR [Suspect]
     Indication: HIV INFECTION
     Route: 048
     Dates: start: 20101019, end: 20110412
  4. FLUNITRAZEPAM [Concomitant]
  5. TRUVADA [Suspect]
     Indication: HIV INFECTION
     Route: 048
     Dates: start: 20101019, end: 20110412

REACTIONS (2)
  - NEPHROPATHY [None]
  - ENTEROBACTER SEPSIS [None]
